FAERS Safety Report 9438346 (Version 1)
Quarter: 2013Q3

REPORT INFORMATION
  Report Type: Spontaneous
  Country: US (occurrence: US)
  Receive Date: 20130802
  Receipt Date: 20130802
  Transmission Date: 20140515
  Serious: No
  Sender: FDA-Public Use
  Company Number: US-BRISTOL-MYERS SQUIBB COMPANY-17169921

PATIENT
  Age: 84 Year
  Sex: Female
  Weight: 56.69 kg

DRUGS (4)
  1. COUMADIN [Suspect]
     Indication: HEART RATE IRREGULAR
  2. EQUATE [Concomitant]
     Indication: CONSTIPATION
  3. OSCAL [Concomitant]
     Dosage: TABS
  4. ATENOLOL [Concomitant]
     Indication: HEART RATE IRREGULAR

REACTIONS (1)
  - Fall [Unknown]
